FAERS Safety Report 4318420-2 (Version None)
Quarter: 2004Q1

REPORT INFORMATION
  Report Type: 
  Country: None (occurrence: None)
  Receive Date: 20040315
  Receipt Date: 20040301
  Transmission Date: 20041129
  Serious: No
  Sender: FDA-Public Use
  Company Number: 2004AP01266

PATIENT
  Age: 14 Year
  Sex: Female
  Weight: 46.2 kg

DRUGS (5)
  1. LIDOCAINE [Suspect]
     Indication: LOCAL ANAESTHESIA
     Dosage: 5 ML ED
  2. LIDOCAINE [Suspect]
     Indication: LOCAL ANAESTHESIA
     Dosage: 5 ML ED
  3. BUPIVACAINE [Suspect]
     Indication: LOCAL ANAESTHESIA
     Dosage: 5 ML ED
  4. BUPIVACAINE [Suspect]
     Indication: LOCAL ANAESTHESIA
     Dosage: 5 ML ED
  5. FENTANYL [Suspect]
     Indication: ANALGESIC EFFECT
     Dosage: 1 UG/ML ED

REACTIONS (4)
  - APNOEA [None]
  - BLOOD PRESSURE DECREASED [None]
  - LOSS OF CONSCIOUSNESS [None]
  - PUPIL FIXED [None]
